FAERS Safety Report 4752960-7 (Version None)
Quarter: 2005Q3

REPORT INFORMATION
  Report Type: 
  Country: None (occurrence: None)
  Receive Date: 20050825
  Receipt Date: 20050810
  Transmission Date: 20060218
  Serious: Yes (Death)
  Sender: FDA-Public Use
  Company Number: R301310-PAP-USA

PATIENT
  Age: 46 Year
  Sex: Male

DRUGS (7)
  1. ACIPHEX [Suspect]
     Dosage: ORAL
     Route: 048
  2. NALSPAN [Concomitant]
  3. TRACOR [Concomitant]
  4. KALITRA [Concomitant]
  5. TRUUADA (EMTRICITABINE) [Concomitant]
  6. NORCO [Concomitant]
  7. WELLBUTRIN [Concomitant]

REACTIONS (1)
  - ROAD TRAFFIC ACCIDENT [None]
